FAERS Safety Report 7307677-1 (Version None)
Quarter: 2011Q1

REPORT INFORMATION
  Report Type: 
  Country: None (occurrence: None)
  Receive Date: 20110210
  Receipt Date: 20110120
  Transmission Date: 20110831
  Serious: Yes (Death)
  Sender: FDA-Public Use
  Company Number: AE11-015-27

PATIENT
  Age: 46 Year
  Sex: Female

DRUGS (2)
  1. LORCET (HYDROCODONE, ACETAMINOPHEN) [Suspect]
  2. CARISOPRODOL [Suspect]

REACTIONS (4)
  - MULTIPLE DRUG OVERDOSE INTENTIONAL [None]
  - CARDIAC ARREST [None]
  - COMPLETED SUICIDE [None]
  - RESPIRATORY ARREST [None]
